FAERS Safety Report 14108631 (Version 2)
Quarter: 2017Q4

REPORT INFORMATION
  Report Type: Spontaneous
  Country: IN (occurrence: IN)
  Receive Date: 20171019
  Receipt Date: 20171110
  Transmission Date: 20180321
  Serious: Yes (Death, Hospitalization, Other)
  Sender: FDA-Public Use
  Company Number: IN-IMPAX LABORATORIES, INC-2017-IPXL-02911

PATIENT
  Age: 54 Year
  Sex: Male

DRUGS (2)
  1. PREDNISOLONE. [Suspect]
     Active Substance: PREDNISOLONE
     Indication: MYASTHENIA GRAVIS
     Dosage: 20 MG, DAILY
     Route: 065
  2. PYRIDOSTIGMINE BROMIDE. [Suspect]
     Active Substance: PYRIDOSTIGMINE BROMIDE
     Indication: MYASTHENIA GRAVIS
     Dosage: 60 MG, DAILY
     Route: 065

REACTIONS (5)
  - Pseudomonal sepsis [Unknown]
  - Escherichia infection [Unknown]
  - Klebsiella infection [Unknown]
  - Morvan syndrome [Fatal]
  - Thymoma [Unknown]
